FAERS Safety Report 10430706 (Version 1)
Quarter: 2014Q3

REPORT INFORMATION
  Report Type: Spontaneous
  Country: US (occurrence: None)
  Receive Date: 20140903
  Receipt Date: 20140903
  Transmission Date: 20150326
  Serious: Yes (Other)
  Sender: FDA-Public Use
  Company Number: None

PATIENT
  Age: 40 Year
  Sex: Male

DRUGS (1)
  1. DULOXETINE HYDROCHLORIDE 30 MG [Suspect]
     Active Substance: DULOXETINE HYDROCHLORIDE
     Indication: DEPRESSION
     Dosage: ONE PILL ONCE DAILY, ONCE DAILY, TAKEN BY MOUTH
     Route: 048

REACTIONS (4)
  - Nightmare [None]
  - Palpitations [None]
  - Product substitution issue [None]
  - Fatigue [None]

NARRATIVE: CASE EVENT DATE: 20140827
